FAERS Safety Report 19513980 (Version 3)
Quarter: 2021Q3

REPORT INFORMATION
  Report Type: Report from Study
  Country: DE (occurrence: DE)
  Receive Date: 20210709
  Receipt Date: 20210915
  Transmission Date: 20211014
  Serious: Yes (Other)
  Sender: FDA-Public Use
  Company Number: DE-PFIZER INC-2021846795

PATIENT
  Sex: Male
  Weight: 63 kg

DRUGS (5)
  1. CETUXIMAB. [Suspect]
     Active Substance: CETUXIMAB
     Indication: COLORECTAL CANCER
     Dosage: 920 MG/M2/WEEK
     Route: 042
     Dates: start: 20210323
  2. LYRICA [Concomitant]
     Active Substance: PREGABALIN
     Indication: DIAGNOSTIC PROCEDURE
     Dosage: 150 MG, QD (1/DAY)
     Route: 048
     Dates: start: 20210427
  3. HALCION [Concomitant]
     Active Substance: TRIAZOLAM
     Indication: DIAGNOSTIC PROCEDURE
     Dosage: 0.25 MG, QD (1/DAY)
     Route: 048
     Dates: start: 20210427
  4. BRAFTOVI [Suspect]
     Active Substance: ENCORAFENIB
     Indication: COLORECTAL CANCER
     Dosage: 300 MG, QD (1/DAY)
     Route: 048
     Dates: start: 20210323, end: 20210427
  5. DOXYCYCLIN RATIOPHARM [Concomitant]
     Indication: PROPHYLAXIS
     Dosage: 100 MG, DAILY
     Route: 048
     Dates: start: 20210323, end: 20210420

REACTIONS (1)
  - Polyneuropathy [Not Recovered/Not Resolved]

NARRATIVE: CASE EVENT DATE: 20210427
